FAERS Safety Report 7889234-1 (Version None)
Quarter: 2011Q4

REPORT INFORMATION
  Report Type: 
  Country: None (occurrence: None)
  Receive Date: 20111103
  Receipt Date: 20111027
  Transmission Date: 20120403
  Serious: Yes (Hospitalization, Disabling, Other)
  Sender: FDA-Public Use
  Company Number: US-MERCK-1104USA03092

PATIENT
  Age: 64 Year
  Sex: Female
  Weight: 71 kg

DRUGS (7)
  1. FOSAMAX PLUS D [Suspect]
     Indication: OSTEOPOROSIS
     Route: 048
     Dates: start: 20050722, end: 20100101
  2. HORMONES (UNSPECIFIED) [Concomitant]
     Route: 065
     Dates: start: 19910101
  3. FOSAMAX [Suspect]
     Indication: OSTEOPENIA
     Route: 048
     Dates: start: 20000101, end: 20101001
  4. ALENDRONATE SODIUM [Suspect]
     Route: 065
     Dates: start: 20090721, end: 20100713
  5. LEVOTHYROXINE SODIUM [Concomitant]
     Indication: HYPERTHYROIDISM
     Route: 065
     Dates: start: 19910101
  6. FOSAMAX [Suspect]
     Indication: OSTEOPOROSIS
     Route: 048
     Dates: start: 20000101, end: 20101001
  7. TAMOXIFEN CITRATE [Suspect]
     Route: 065

REACTIONS (22)
  - BREAST CANCER METASTATIC [None]
  - OSTEOARTHRITIS [None]
  - ASTHENIA [None]
  - BONE DENSITY DECREASED [None]
  - SPINAL COMPRESSION FRACTURE [None]
  - CHRONIC OBSTRUCTIVE PULMONARY DISEASE [None]
  - PAIN IN EXTREMITY [None]
  - MYALGIA [None]
  - MITRAL VALVE CALCIFICATION [None]
  - ADVERSE DRUG REACTION [None]
  - MITRAL VALVE PROLAPSE [None]
  - KYPHOSIS [None]
  - ANAEMIA POSTOPERATIVE [None]
  - STRESS FRACTURE [None]
  - MORTON'S NEUROMA [None]
  - GASTROOESOPHAGEAL REFLUX DISEASE [None]
  - DRUG HYPERSENSITIVITY [None]
  - FEMUR FRACTURE [None]
  - FALL [None]
  - NEURALGIA [None]
  - OSTEOPOROSIS [None]
  - HYPOTHYROIDISM [None]
